FAERS Safety Report 6184962-0 (Version None)
Quarter: 2009Q2

REPORT INFORMATION
  Report Type: 
  Country: None (occurrence: None)
  Receive Date: 20090511
  Receipt Date: 20090129
  Transmission Date: 20091009
  Serious: No
  Sender: FDA-Public Use
  Company Number: A0765914A

PATIENT
  Age: 58 Year
  Sex: Male

DRUGS (5)
  1. COREG CR [Suspect]
     Indication: HYPERTENSION
     Dosage: 20MG PER DAY
     Route: 048
     Dates: start: 20081001
  2. CADUET [Concomitant]
  3. AFRIN [Concomitant]
  4. OMNARIS [Concomitant]
  5. HUMALOG MIX [Concomitant]

REACTIONS (1)
  - HYPOTENSION [None]
